FAERS Safety Report 5369563-6 (Version None)
Quarter: 2007Q2

REPORT INFORMATION
  Report Type: 
  Country: None (occurrence: None)
  Receive Date: 20070625
  Receipt Date: 20070615
  Transmission Date: 20071010
  Serious: Yes (Hospitalization, Other)
  Sender: FDA-Public Use
  Company Number: US-ABBOTT-07P-163-0371920-00

PATIENT
  Sex: Female
  Weight: 54.934 kg

DRUGS (17)
  1. HUMIRA [Suspect]
     Indication: RHEUMATOID ARTHRITIS
     Route: 058
     Dates: start: 20050101, end: 20070301
  2. FUROSEMIDE [Concomitant]
     Indication: RENAL DISORDER
     Route: 048
     Dates: start: 19970101
  3. LEVOTHYROXINE SODIUM [Concomitant]
     Indication: HYPOTHYROIDISM
     Route: 048
  4. METHOTREXATE [Concomitant]
     Indication: RHEUMATOID ARTHRITIS
     Route: 048
     Dates: start: 19900101
  5. MECLIZINE [Concomitant]
     Indication: VERTIGO
     Route: 048
     Dates: start: 20060101
  6. GLYCERYL TRINITRATE [Concomitant]
     Indication: ATRIAL FIBRILLATION
     Route: 060
     Dates: start: 20020101
  7. PREDNISONE TAB [Concomitant]
     Indication: RHEUMATOID ARTHRITIS
     Route: 048
     Dates: start: 19900101
  8. WARFARIN SODIUM [Concomitant]
     Indication: ATRIAL FIBRILLATION
     Dosage: 4 MG EVERYDAY EXCEPT ON THURSDAY WHEN SHE TAKES 2 MG
     Route: 048
     Dates: start: 20020101
  9. WARFARIN SODIUM [Concomitant]
     Route: 048
     Dates: start: 20020101
  10. VITAMIN E [Concomitant]
     Indication: VITAMIN SUPPLEMENTATION
     Route: 048
     Dates: start: 19970101
  11. IRON [Concomitant]
     Indication: MINERAL SUPPLEMENTATION
     Route: 048
     Dates: start: 20070101
  12. ACEBUTOLOL [Concomitant]
     Indication: ATRIAL FIBRILLATION
     Route: 048
     Dates: start: 20020101
  13. ALPHEGAN [Concomitant]
     Indication: GLAUCOMA
     Dosage: 1 DROP EACH EYE TWICE A DAY
     Route: 047
     Dates: start: 19890101
  14. CALCITRIOL [Concomitant]
     Indication: OSTEOPOROSIS
     Route: 048
     Dates: start: 20070501
  15. CALCIUM D [Concomitant]
     Indication: OSTEOPOROSIS
     Route: 048
     Dates: start: 20060101
  16. ESOMEPRAZOLE MAGNESIUM [Concomitant]
     Indication: GASTROOESOPHAGEAL REFLUX DISEASE
     Route: 048
     Dates: start: 20060101
  17. FOLIC ACID [Concomitant]
     Indication: RHEUMATOID ARTHRITIS
     Route: 048
     Dates: start: 19900101

REACTIONS (3)
  - DEHYDRATION [None]
  - PNEUMONIA [None]
  - SPINAL FRACTURE [None]
